FAERS Safety Report 6225484-8 (Version None)
Quarter: 2009Q2

REPORT INFORMATION
  Report Type: 
  Country: None (occurrence: None)
  Receive Date: 20090612
  Receipt Date: 20090421
  Transmission Date: 20091009
  Serious: No
  Sender: FDA-Public Use
  Company Number: US-ABBOTT-09P-163-0569207-00

PATIENT
  Sex: Female
  Weight: 77.18 kg

DRUGS (6)
  1. HUMIRA [Suspect]
     Indication: RHEUMATOID ARTHRITIS
     Dates: start: 20070101, end: 20070101
  2. HUMIRA [Suspect]
     Route: 058
     Dates: start: 20090324
  3. METHOTREXATE [Concomitant]
     Indication: RHEUMATOID ARTHRITIS
     Route: 048
  4. LORTAB [Concomitant]
     Indication: PAIN
     Dosage: 1-3 TABS AS NEEDED
     Route: 048
  5. VISTARIL [Concomitant]
     Indication: ANXIETY
     Dosage: 1-2 A DAY AS NEEDED
     Route: 048
  6. MULTI-VITAMIN [Concomitant]
     Indication: MEDICAL DIET
     Route: 048

REACTIONS (2)
  - DRUG INEFFECTIVE [None]
  - PAIN [None]
